FAERS Safety Report 4677189-2 (Version None)
Quarter: 2005Q2

REPORT INFORMATION
  Report Type: 
  Country: None (occurrence: None)
  Receive Date: 20050531
  Receipt Date: 20050518
  Transmission Date: 20051028
  Serious: Yes (Other)
  Sender: FDA-Public Use
  Company Number: GB-JNJFOC-20050504582

PATIENT
  Sex: Female
  Weight: 73 kg

DRUGS (13)
  1. REMICADE [Suspect]
     Indication: RHEUMATOID ARTHRITIS
     Route: 042
  2. METHOTREXATE [Concomitant]
  3. ARTHROTEC [Concomitant]
  4. ARTHROTEC [Concomitant]
  5. LANSOPRAZOLE [Concomitant]
  6. SIMVASTATIN [Concomitant]
  7. ASPIRIN [Concomitant]
  8. EVISTA [Concomitant]
  9. AMLODIPINE [Concomitant]
  10. FRUSAMIDE [Concomitant]
  11. FOLIC ACID [Concomitant]
  12. LISINOPRIL [Concomitant]
  13. DIHYDROCODEINE [Concomitant]

REACTIONS (1)
  - OVARIAN CANCER [None]
